FAERS Safety Report 21309811 (Version 2)
Quarter: 2022Q3

REPORT INFORMATION
  Report Type: Report from Study
  Country: AT (occurrence: AT)
  Receive Date: 20220908
  Receipt Date: 20220915
  Transmission Date: 20221026
  Serious: Yes (Hospitalization, Other)
  Sender: FDA-Public Use
  Company Number: AT-BRISTOL-MYERS SQUIBB COMPANY-2022-101508

PATIENT
  Age: 62 Year
  Sex: Female
  Weight: 92 kg

DRUGS (19)
  1. PACLITAXEL [Suspect]
     Active Substance: PACLITAXEL
     Indication: Breast cancer
     Dosage: PRIOR TO THE EVENT ONSET, THE PATIENT RECEIVED HER MOST RECENT DOSE OF 155.54 MG ON 04-MAY-2022.
     Route: 042
     Dates: start: 20220216
  2. PACLITAXEL [Suspect]
     Active Substance: PACLITAXEL
     Route: 042
     Dates: start: 20220504
  3. CYCLOPHOSPHAMIDE [Suspect]
     Active Substance: CYCLOPHOSPHAMIDE
     Indication: Breast cancer
     Dosage: PRIOR TO THE EVENT ONSET, THE PATIENT RECEIVED HER MOST RECENT DOSE OF 1112.04 MG ON 20-JUL-2022.
     Route: 042
     Dates: start: 20220518, end: 20220720
  4. CYCLOPHOSPHAMIDE [Suspect]
     Active Substance: CYCLOPHOSPHAMIDE
     Route: 042
     Dates: start: 20220720
  5. DOXORUBICIN HYDROCHLORIDE [Suspect]
     Active Substance: DOXORUBICIN HYDROCHLORIDE
     Indication: Breast cancer
     Dosage: PRIOR TO THE EVENT ONSET, THE PATIENT RECEIVED HER MOST RECENT DOSE OF 109.29 MG ON 20-JUL-2022.
     Route: 042
     Dates: start: 20220518, end: 20220720
  6. DOXORUBICIN HYDROCHLORIDE [Suspect]
     Active Substance: DOXORUBICIN HYDROCHLORIDE
     Route: 042
     Dates: start: 20220720
  7. METAMIZOLE [Suspect]
     Active Substance: METAMIZOLE
     Indication: Product used for unknown indication
     Route: 065
     Dates: start: 20220803
  8. NEBIVOLOL HYDROCHLORIDE [Concomitant]
     Active Substance: NEBIVOLOL HYDROCHLORIDE
     Indication: Product used for unknown indication
     Dosage: ONGOING
     Route: 048
     Dates: start: 201610
  9. CO ACETAN [Concomitant]
     Indication: Product used for unknown indication
     Dosage: UNK?ONGOING
     Route: 048
     Dates: start: 201610
  10. METFORMIN HYDROCHLORIDE [Concomitant]
     Active Substance: METFORMIN HYDROCHLORIDE
     Indication: Hyperglycaemia
     Dosage: ONGOING
     Route: 048
     Dates: start: 20220217
  11. OLEOVIT [RETINOL] [Concomitant]
     Indication: Prophylaxis
     Dosage: 1 DF- 1000 UNITS NOS?ONGOING
     Route: 048
     Dates: start: 202201
  12. TAZOBACTAM [Concomitant]
     Active Substance: TAZOBACTAM
     Indication: Urinary tract infection
     Route: 042
     Dates: start: 20220901, end: 20220908
  13. ELOMEL [Concomitant]
     Indication: Prophylaxis
     Dosage: ELOMEL ISOTON?1 DF- 500 UNITS NOS?ONGOING
     Route: 042
     Dates: start: 20220901
  14. ENOXAPARIN SODIUM [Concomitant]
     Active Substance: ENOXAPARIN SODIUM
     Indication: Prophylaxis
     Dosage: ONGOING
     Route: 042
     Dates: start: 20220901
  15. IBUPROFEN SODIUM [Concomitant]
     Active Substance: IBUPROFEN SODIUM
     Indication: Pharyngitis
     Dosage: ONGOING
     Route: 048
     Dates: start: 20220901
  16. TANTUM [BENZYDAMINE HYDROCHLORIDE] [Concomitant]
     Indication: Pharyngitis
     Dosage: TATNUM VERDE?ONGOING
     Route: 048
     Dates: start: 20220901
  17. TOZINAMERAN [Concomitant]
     Active Substance: TOZINAMERAN
     Indication: COVID-19 prophylaxis
     Dosage: LEFT DELTOID MUSCLE
     Route: 030
     Dates: start: 202106
  18. TOZINAMERAN [Concomitant]
     Active Substance: TOZINAMERAN
     Dosage: LEFT DELTOID MUSCLE
     Route: 030
     Dates: start: 202107
  19. TOZINAMERAN [Concomitant]
     Active Substance: TOZINAMERAN
     Dosage: LEFT DELTOID MUSCLE
     Route: 030
     Dates: start: 20211130

REACTIONS (1)
  - Neutropenia [Not Recovered/Not Resolved]

NARRATIVE: CASE EVENT DATE: 20220901
